FAERS Safety Report 4982123-1 (Version None)
Quarter: 2006Q2

REPORT INFORMATION
  Report Type: 
  Country: None (occurrence: None)
  Receive Date: 20060425
  Receipt Date: 20051108
  Transmission Date: 20061013
  Serious: Yes (Hospitalization)
  Sender: FDA-Public Use
  Company Number: US-MERCK-0511USA01601

PATIENT
  Age: 79 Year
  Sex: Male
  Weight: 66 kg

DRUGS (6)
  1. VIOXX [Suspect]
     Indication: ARTHRITIS
     Route: 048
     Dates: start: 20020601, end: 20041001
  2. VASOTEC [Concomitant]
     Route: 048
  3. FOSAMAX [Concomitant]
     Route: 048
  4. NORVASC [Concomitant]
     Route: 065
  5. PREVACID [Concomitant]
     Route: 065
  6. VIAGRA [Concomitant]
     Route: 065

REACTIONS (10)
  - AMNESIA [None]
  - CEREBROVASCULAR ACCIDENT [None]
  - CONFUSIONAL STATE [None]
  - DEHYDRATION [None]
  - DEPRESSION [None]
  - HERNIA [None]
  - HYPOAESTHESIA [None]
  - MENTAL STATUS CHANGES [None]
  - TRANSIENT ISCHAEMIC ATTACK [None]
  - VOCAL CORD PARALYSIS [None]
